FAERS Safety Report 17209453 (Version 1)
Quarter: 2019Q4

REPORT INFORMATION
  Report Type: Spontaneous
  Country: DE (occurrence: DE)
  Receive Date: 20191227
  Receipt Date: 20191227
  Transmission Date: 20200122
  Serious: Yes (Other)
  Sender: FDA-Public Use
  Company Number: DE-MYLANLABS-2019M1127722

PATIENT
  Age: 1 Day
  Sex: Male
  Weight: 2 kg

DRUGS (5)
  1. IBUPROFEN. [Concomitant]
     Active Substance: IBUPROFEN
     Indication: MIGRAINE
     Dosage: PROBABLY TAKEN FOR NINE DAYS BETWEEN GW 12+6 AND 16+5
     Route: 064
     Dates: start: 20180910, end: 20181007
  2. IMIGRAN                            /01044801/ [Concomitant]
     Active Substance: SUMATRIPTAN
     Indication: MIGRAINE
     Dosage: 20 [MG/D ]/ ON FOUR DAYS BETWEEN GW 5+4 AND 8+5
     Route: 064
     Dates: start: 20180721, end: 20180812
  3. COFFEIN [Concomitant]
     Active Substance: CAFFEINE
     Indication: MIGRAINE
     Dosage: IF REQUIRED
     Route: 064
     Dates: start: 20180724, end: 20190201
  4. METOPROLOL. [Suspect]
     Active Substance: METOPROLOL
     Indication: MIGRAINE PROPHYLAXIS
     Dosage: 47.5 [MG/D (BIS 23.75) ]
     Route: 064
     Dates: start: 20180612, end: 20190223
  5. PARACETAMOL [Concomitant]
     Active Substance: ACETAMINOPHEN
     Indication: MIGRAINE
     Dosage: 1000 [MG/D ]
     Route: 064
     Dates: start: 20190106, end: 20190106

REACTIONS (2)
  - Small for dates baby [Not Recovered/Not Resolved]
  - Foetal exposure during pregnancy [Recovered/Resolved]

NARRATIVE: CASE EVENT DATE: 20190223
